FAERS Safety Report 6553877-8 (Version None)
Quarter: 2010Q1

REPORT INFORMATION
  Report Type: 
  Country: None (occurrence: None)
  Receive Date: 20100127
  Receipt Date: 20100119
  Transmission Date: 20100710
  Serious: Yes (Hospitalization)
  Sender: FDA-Public Use
  Company Number: IE-ROCHE-676460

PATIENT
  Sex: Female
  Weight: 83 kg

DRUGS (7)
  1. TRASTUZUMAB [Suspect]
     Indication: BREAST CANCER
     Dosage: DOSE LEVEAL: 8 MG/KG, FORM: VAILS LAST DOSE PRIOR TO SAE: 15 DEC 2009.
     Route: 042
     Dates: start: 20091215, end: 20091224
  2. BEVACIZUMAB [Suspect]
     Indication: BREAST CANCER
     Dosage: FROM: VIAL, DOSE LEVEAL: 15 MG/KG, LAST DOSE PRIOR TO SAE 15 DECEMBER 2009.
     Route: 042
     Dates: start: 20091215, end: 20091224
  3. DOCETAXEL [Suspect]
     Indication: BREAST CANCER
     Dosage: DOSE LEVEL: 75 MG/M^2, FORM: VAIL, LAST DOSE PRIOR TO SAE ON 15 DEC 2009.
     Route: 042
     Dates: start: 20091215, end: 20091224
  4. CARBOPLATIN [Suspect]
     Indication: BREAST CANCER
     Dosage: DOSE LEVEL: 6 AUC, FORM: VAIL, LAST DOSE PRIOR TO SAE ON 15 DEC 2009.
     Route: 042
     Dates: start: 20091215, end: 20091224
  5. NEXIUM [Concomitant]
     Dates: start: 20091222
  6. DOMPERIDONE [Concomitant]
     Dates: start: 20091222, end: 20091226
  7. BUSCOPAN [Concomitant]
     Dates: start: 20091222, end: 20091227

REACTIONS (3)
  - DIARRHOEA [None]
  - FEBRILE NEUTROPENIA [None]
  - GASTROINTESTINAL HAEMORRHAGE [None]
